FAERS Safety Report 5411263-8 (Version None)
Quarter: 2007Q3

REPORT INFORMATION
  Report Type: 
  Country: None (occurrence: None)
  Receive Date: 20070808
  Receipt Date: 20070803
  Transmission Date: 20080115
  Serious: Yes (Hospitalization)
  Sender: FDA-Public Use
  Company Number: E2020-01496-SPO-JP

PATIENT
  Age: 73 Year
  Sex: Female
  Weight: 30.35 kg

DRUGS (1)
  1. ARICEPT [Suspect]
     Indication: DEMENTIA ALZHEIMER'S TYPE
     Dosage: 2.5 MG, 1 IN 1 D, ORAL
     Route: 048
     Dates: start: 20070329, end: 20070408

REACTIONS (4)
  - ANAEMIA MEGALOBLASTIC [None]
  - ANAEMIA VITAMIN B12 DEFICIENCY [None]
  - CONDITION AGGRAVATED [None]
  - LEUKOPENIA [None]
